FAERS Safety Report 6517727-8 (Version None)
Quarter: 2009Q4

REPORT INFORMATION
  Report Type: 
  Country: None (occurrence: None)
  Receive Date: 20091224
  Receipt Date: 20091216
  Transmission Date: 20100525
  Serious: Yes (Life-Threatening)
  Sender: FDA-Public Use
  Company Number: AU-BRISTOL-MYERS SQUIBB COMPANY-14902829

PATIENT
  Age: 44 Year
  Sex: Male

DRUGS (6)
  1. ABATACEPT [Suspect]
     Route: 042
     Dates: start: 20090716, end: 20090730
  2. FLOXACILLIN SODIUM [Suspect]
     Dosage: 1 DF = 15 UNIT NOT SPECIFIED.
     Route: 042
     Dates: start: 20090808, end: 20090808
  3. METHOTREXATE [Suspect]
  4. CELEBREX [Concomitant]
  5. FOLIC ACID [Concomitant]
  6. PANAFCORTELONE [Concomitant]

REACTIONS (3)
  - ARTHRITIS BACTERIAL [None]
  - LIVER FUNCTION TEST ABNORMAL [None]
  - NEUTROPHILIA [None]
